FAERS Safety Report 9440461 (Version 1)
Quarter: 2013Q3

REPORT INFORMATION
  Report Type: Spontaneous
  Country: IT (occurrence: IT)
  Receive Date: 20130805
  Receipt Date: 20130805
  Transmission Date: 20140515
  Serious: Yes (Hospitalization)
  Sender: FDA-Public Use
  Company Number: PHHY2013IT082174

PATIENT
  Sex: Male

DRUGS (3)
  1. NIMESULIDE [Suspect]
     Indication: CHEST PAIN
     Dosage: 600 MG, UNK
     Route: 048
     Dates: start: 20130530, end: 20130530
  2. IBUPROFEN [Suspect]
     Indication: CHEST PAIN
     Dosage: 600 MG, UNK
     Route: 048
     Dates: start: 20130530, end: 20130530
  3. DILTIAZEM [Concomitant]

REACTIONS (2)
  - Hypotension [Unknown]
  - Rectal haemorrhage [Unknown]
